FAERS Safety Report 8692382 (Version 2)
Quarter: 2013Q4

REPORT INFORMATION
  Report Type: Spontaneous
  Country: US (occurrence: US)
  Receive Date: 20120730
  Receipt Date: 20131107
  Transmission Date: 20140711
  Serious: Yes (Other)
  Sender: FDA-Public Use
  Company Number: US-009507513-1207USA009810

PATIENT
  Sex: Male

DRUGS (4)
  1. ZOCOR [Suspect]
     Route: 048
  2. LIPITOR [Suspect]
     Dosage: 80 MG, QD
     Route: 048
  3. LIPITOR [Suspect]
     Dosage: UNK
     Route: 048
  4. GLUCOVANCE [Concomitant]

REACTIONS (8)
  - Myalgia [Unknown]
  - Blood cholesterol increased [Unknown]
  - Drug intolerance [Unknown]
  - Low density lipoprotein increased [Unknown]
  - Asthenia [Unknown]
  - Muscular weakness [Unknown]
  - Renal impairment [Unknown]
  - Vascular insufficiency [Unknown]
